FAERS Safety Report 13298082 (Version 2)
Quarter: 2017Q1

REPORT INFORMATION
  Report Type: Spontaneous
  Country: US (occurrence: US)
  Receive Date: 20170306
  Receipt Date: 20170320
  Transmission Date: 20170428
  Serious: Yes (Other)
  Sender: FDA-Public Use
  Company Number: US-JNJFOC-20170221522

PATIENT
  Age: 76 Year
  Sex: Female
  Weight: 52.16 kg

DRUGS (1)
  1. TYLENOL EXTRA STRENGTH [Suspect]
     Active Substance: ACETAMINOPHEN
     Indication: ANALGESIC THERAPY
     Dosage: 1 CAPLET EVERY 4 HOURS (ALSO REPORTED AS 1 CAPLET EVERY 3 HOURS, PATIENT DOES NOT TAKE IT EVERY DAY)
     Route: 048
     Dates: start: 20170208, end: 20170221

REACTIONS (3)
  - Feeling cold [Unknown]
  - Loss of consciousness [Unknown]
  - Night sweats [Unknown]

NARRATIVE: CASE EVENT DATE: 20170208
